FAERS Safety Report 11328819 (Version 1)
Quarter: 2015Q3

REPORT INFORMATION
  Report Type: Spontaneous
  Country: US (occurrence: US)
  Receive Date: 20150731
  Receipt Date: 20150731
  Transmission Date: 20151125
  Serious: No
  Sender: FDA-Public Use
  Company Number: US-ASTRAZENECA-2015SE70676

PATIENT
  Sex: Female
  Weight: 121.1 kg

DRUGS (10)
  1. LISINOPRIL. [Suspect]
     Active Substance: LISINOPRIL
     Indication: BLOOD PRESSURE ABNORMAL
     Route: 048
  2. METFORMIN [Concomitant]
     Active Substance: METFORMIN HYDROCHLORIDE
  3. LORAZEPAM. [Concomitant]
     Active Substance: LORAZEPAM
  4. NOVOLIN [Concomitant]
     Active Substance: INSULIN HUMAN
     Dosage: 70/30 40 UNITS IN THE MORNING AND 30 UNITS IN THE EVENING
  5. FLEXERIL [Concomitant]
     Active Substance: CYCLOBENZAPRINE HYDROCHLORIDE
     Dosage: AS REQUIRED
  6. LEVOTHYROXINE. [Concomitant]
     Active Substance: LEVOTHYROXINE
  7. BYDUREON [Suspect]
     Active Substance: EXENATIDE
     Indication: TYPE 2 DIABETES MELLITUS
     Route: 058
  8. MEGA RED KRILL OIL [Concomitant]
  9. VENLAFAXINE [Concomitant]
     Active Substance: VENLAFAXINE HYDROCHLORIDE
  10. GABAPENTIN. [Concomitant]
     Active Substance: GABAPENTIN

REACTIONS (7)
  - Anxiety [Unknown]
  - Weight decreased [Unknown]
  - Injection site pruritus [Recovering/Resolving]
  - Injection site extravasation [Unknown]
  - Nausea [Not Recovered/Not Resolved]
  - Vomiting [Recovered/Resolved]
  - Injection site nodule [Recovering/Resolving]
